FAERS Safety Report 8565857-1 (Version None)
Quarter: 2012Q3

REPORT INFORMATION
  Report Type: 
  Country: None (occurrence: None)
  Receive Date: 20120803
  Receipt Date: 20111005
  Transmission Date: 20120928
  Serious: No
  Sender: FDA-Public Use
  Company Number: US-ABBOTT-11P-163-0862105-00

PATIENT
  Sex: Male

DRUGS (2)
  1. NIASPAN [Suspect]
     Indication: HIGH DENSITY LIPOPROTEIN INCREASED
     Route: 048
     Dates: start: 20090825
  2. LIPITOR [Concomitant]
     Indication: HIGH DENSITY LIPOPROTEIN INCREASED
     Dates: start: 20090825

REACTIONS (1)
  - HIGH DENSITY LIPOPROTEIN DECREASED [None]
